FAERS Safety Report 8221313-1 (Version None)
Quarter: 2012Q1

REPORT INFORMATION
  Report Type: 
  Country: None (occurrence: None)
  Receive Date: 20120320
  Receipt Date: 20120315
  Transmission Date: 20120608
  Serious: Yes (Hospitalization, Other)
  Sender: FDA-Public Use
  Company Number: PHEH2007US01093

PATIENT
  Sex: Female

DRUGS (52)
  1. LAMICTAL [Concomitant]
     Dosage: 200 MG, UNK
  2. TEMOVATE [Concomitant]
     Dosage: 0.05 %, UNK
  3. MS CONTIN [Concomitant]
     Dosage: 100 MG, UNK
  4. PROPOXYPHENE NAPSYLATE W/ ACETAMINOPHEN [Concomitant]
  5. IONAMIN [Concomitant]
     Dosage: 15 MG, UNK
  6. ACETAMINOPHEN W/ CODEINE [Concomitant]
  7. BIAXIN [Concomitant]
     Dosage: 500 MG, UNK
  8. ZANTAC [Concomitant]
  9. TYLENOL W/ CODEINE [Concomitant]
  10. BACTROBAN                               /NET/ [Concomitant]
     Dosage: 2 %, UNK
  11. GENTAK [Concomitant]
     Dosage: 3 MG/KG, UNK
  12. CEPHALEXIN [Concomitant]
     Dosage: 500 MG, UNK
  13. PERCOCET [Concomitant]
     Dosage: 325 MG, UNK
  14. ROXICET [Concomitant]
     Dosage: 325 MG, UNK
  15. AROMASIN [Concomitant]
     Dosage: 25 MG, UNK
  16. SODIUM CHLORIDE [Concomitant]
  17. ALOXI [Concomitant]
  18. XANAX [Concomitant]
  19. VICODIN [Concomitant]
     Dosage: 500 MG, UNK
  20. DILAUDID [Concomitant]
     Dosage: 4 MG, UNK
  21. ALPRAZOLAM [Concomitant]
     Dosage: 0.5 MG, UNK
  22. GEMZAR [Concomitant]
  23. DIPHENHYDRAMINE HCL [Concomitant]
  24. VINORELBINE [Concomitant]
  25. ALEVE                              /00256202/ [Concomitant]
  26. IBUPROFEN (ADVIL) [Concomitant]
  27. AMOXICILLIN [Concomitant]
     Dosage: 500 MG, UNK
  28. DURAGESIC-100 [Concomitant]
     Dosage: 100 MG/H, UNK
  29. FUROSEMIDE [Concomitant]
     Dosage: 20 MG, UNK
  30. CIPROFLOXACIN [Concomitant]
     Dosage: 500 MG, UNK
  31. FASLODEX [Concomitant]
  32. ABRAXANE [Concomitant]
  33. AREDIA [Suspect]
     Indication: RESORPTION BONE INCREASED
     Route: 042
     Dates: start: 20010402, end: 20020204
  34. CLINDAMYCIN [Concomitant]
     Dosage: 300 MG, UNK
  35. LORAZEPAM [Concomitant]
     Dosage: 1 MG, UNK
  36. MORPHINE SULFATE [Concomitant]
     Dosage: 15 UKN, UNK
  37. HYDROMORPHONE HCL [Concomitant]
     Dosage: 4 MG, UNK
  38. METHADOSE [Concomitant]
     Dosage: 10 MG, UNK
  39. KYTRIL [Concomitant]
  40. PACLITAXEL [Concomitant]
  41. LASIX [Concomitant]
  42. POTASSIUM CHLORIDE [Concomitant]
  43. OXYCODONE HCL [Concomitant]
     Dosage: 80 MG, UNK
  44. CARBOPLATIN [Concomitant]
  45. AREDIA [Suspect]
     Dates: start: 20021105, end: 20060220
  46. ZOMETA [Suspect]
     Indication: RESORPTION BONE INCREASED
     Route: 042
     Dates: start: 20020506, end: 20020805
  47. KEFLEX [Concomitant]
     Dosage: 500 MG, UNK
  48. OXYCONTIN [Concomitant]
     Dosage: 80 MG, UNK
  49. AMBIEN [Concomitant]
     Dosage: 10 MG, UNK
  50. DEXAMETHASONE [Concomitant]
  51. LETROZOLE [Concomitant]
  52. RADIATION [Concomitant]

REACTIONS (38)
  - MASS [None]
  - VERTEBRAL FORAMINAL STENOSIS [None]
  - LYMPHADENOPATHY [None]
  - SPINAL COMPRESSION FRACTURE [None]
  - EMOTIONAL DISTRESS [None]
  - HEPATITIS C [None]
  - RADICULITIS [None]
  - FACET JOINT SYNDROME [None]
  - MALAISE [None]
  - OSTEONECROSIS OF JAW [None]
  - PAIN [None]
  - BREAST CANCER RECURRENT [None]
  - INTERVERTEBRAL DISC DEGENERATION [None]
  - INTERVERTEBRAL DISC SPACE NARROWING [None]
  - PANCREATIC CYST [None]
  - INJURY [None]
  - LUNG NEOPLASM [None]
  - BACK PAIN [None]
  - HYPOAESTHESIA [None]
  - PARAESTHESIA [None]
  - SPONDYLOLISTHESIS [None]
  - HYPOKALAEMIA [None]
  - PULMONARY FIBROSIS [None]
  - METASTASES TO LUNG [None]
  - METASTASES TO BONE [None]
  - METASTASES TO SPINE [None]
  - METASTASES TO PELVIS [None]
  - INTERVERTEBRAL DISC PROTRUSION [None]
  - DECREASED INTEREST [None]
  - METASTASES TO LIVER [None]
  - PLATELET COUNT DECREASED [None]
  - SPLENOMEGALY [None]
  - HIATUS HERNIA [None]
  - OEDEMA [None]
  - HEPATIC STEATOSIS [None]
  - RENAL CYST [None]
  - FATIGUE [None]
  - PAIN IN EXTREMITY [None]
